FAERS Safety Report 14895278 (Version 1)
Quarter: 2018Q2

REPORT INFORMATION
  Report Type: Spontaneous
  Country: US (occurrence: US)
  Receive Date: 20180426
  Receipt Date: 20180426
  Transmission Date: 20180711
  Serious: Yes (Hospitalization)
  Sender: FDA-Public Use
  Company Number: None

PATIENT
  Age: 22 Year
  Sex: Female

DRUGS (13)
  1. SSKI SOL [Concomitant]
  2. METHADONE [Concomitant]
     Active Substance: METHADONE HYDROCHLORIDE
  3. CLONIDINE. [Concomitant]
     Active Substance: CLONIDINE
  4. LEUKINE [Suspect]
     Active Substance: SARGRAMOSTIM
     Indication: ADRENAL GLAND CANCER
     Route: 058
     Dates: start: 20180303
  5. GRANISETRON [Concomitant]
     Active Substance: GRANISETRON
  6. GABAPENTIN. [Concomitant]
     Active Substance: GABAPENTIN
  7. ACYCLOVIR. [Concomitant]
     Active Substance: ACYCLOVIR
  8. AMNESTEEM [Concomitant]
     Active Substance: ISOTRETINOIN
  9. LORAZEPAM. [Concomitant]
     Active Substance: LORAZEPAM
  10. LORAZEPAM. [Concomitant]
     Active Substance: LORAZEPAM
  11. MORPHINE SUL [Concomitant]
     Active Substance: MORPHINE SULFATE
  12. FLUCONAZOLE. [Concomitant]
     Active Substance: FLUCONAZOLE
  13. PROMETHAZINE [Concomitant]
     Active Substance: PROMETHAZINE\PROMETHAZINE HYDROCHLORIDE

REACTIONS (2)
  - Malaise [None]
  - Weight decreased [None]

NARRATIVE: CASE EVENT DATE: 201804
